FAERS Safety Report 22221051 (Version 2)
Quarter: 2023Q2

REPORT INFORMATION
  Report Type: Spontaneous
  Country: CA (occurrence: CA)
  Receive Date: 20230418
  Receipt Date: 20230614
  Transmission Date: 20230721
  Serious: Yes (Hospitalization)
  Sender: FDA-Public Use
  Company Number: CA-CELLTRION INC.-2023CA007943

PATIENT

DRUGS (4)
  1. INFLECTRA [Suspect]
     Active Substance: INFLIXIMAB-DYYB
     Indication: Crohn^s disease
     Dosage: EVERY 6 WEEK
     Route: 042
     Dates: start: 20201230
  2. INFLECTRA [Suspect]
     Active Substance: INFLIXIMAB-DYYB
     Dosage: EVERY 6 WEEK
     Route: 042
     Dates: start: 20230117
  3. INFLECTRA [Suspect]
     Active Substance: INFLIXIMAB-DYYB
     Dosage: EVERY 6 WEEK
     Route: 042
     Dates: start: 20230228
  4. INFLECTRA [Suspect]
     Active Substance: INFLIXIMAB-DYYB
     Dosage: 11.4MG/KG, EVERY 6 WEEK
     Route: 042
     Dates: start: 20230411

REACTIONS (4)
  - Vomiting [Unknown]
  - Epistaxis [Unknown]
  - Off label use [Unknown]
  - Off label use [Unknown]

NARRATIVE: CASE EVENT DATE: 20201230
